FAERS Safety Report 6220816-9 (Version None)
Quarter: 2009Q2

REPORT INFORMATION
  Report Type: 
  Country: None (occurrence: None)
  Receive Date: 20090610
  Receipt Date: 20090605
  Transmission Date: 20091009
  Serious: Yes (Hospitalization, Other)
  Sender: FDA-Public Use
  Company Number: BR-BAYER-200816408LA

PATIENT
  Age: 82 Year
  Sex: Male
  Weight: 74 kg

DRUGS (5)
  1. SORAFENIB OR PLACEBO [Suspect]
     Indication: NON-SMALL CELL LUNG CANCER
     Route: 048
     Dates: start: 20071113, end: 20071113
  2. GEMCITABINE [Suspect]
     Indication: NON-SMALL CELL LUNG CANCER
     Route: 065
     Dates: start: 20071113, end: 20071113
  3. GEMCITABINE [Suspect]
     Route: 065
     Dates: start: 20071101, end: 20071120
  4. CISPLATIN [Suspect]
     Indication: NON-SMALL CELL LUNG CANCER
     Route: 065
     Dates: start: 20071113, end: 20071113
  5. CISPLATIN [Suspect]
     Route: 065
     Dates: end: 20081128

REACTIONS (2)
  - RENAL FAILURE [None]
  - THROMBOCYTOPENIA [None]
